FAERS Safety Report 13500398 (Version 3)
Quarter: 2019Q1

REPORT INFORMATION
  Report Type: Spontaneous
  Country: US (occurrence: US)
  Receive Date: 20170501
  Receipt Date: 20190102
  Transmission Date: 20190417
  Serious: Yes (Other)
  Sender: FDA-Public Use
  Company Number: US-SA-2017SA075306

PATIENT
  Age: 60 Year
  Sex: Female

DRUGS (2)
  1. TOUJEO [Suspect]
     Active Substance: INSULIN GLARGINE
     Dosage: 40 U, HS
     Route: 065
  2. TOUJEO [Suspect]
     Active Substance: INSULIN GLARGINE
     Indication: TYPE 2 DIABETES MELLITUS
     Dosage: 10 DF,HS
     Route: 051
     Dates: start: 20170320

REACTIONS (4)
  - Spondylitis [Unknown]
  - Product dose omission [Unknown]
  - Respiratory tract infection [Unknown]
  - Nerve injury [Unknown]

NARRATIVE: CASE EVENT DATE: 2017
